FAERS Safety Report 17250989 (Version 1)
Quarter: 2020Q1

REPORT INFORMATION
  Report Type: Spontaneous
  Country: DE (occurrence: DE)
  Receive Date: 20200109
  Receipt Date: 20200109
  Transmission Date: 20200409
  Serious: Yes (Hospitalization, Other)
  Sender: FDA-Public Use
  Company Number: DE-TEVA-2020-DE-1164413

PATIENT
  Age: 72 Year
  Sex: Female

DRUGS (2)
  1. RAMIPRIL 2,5 MG [Suspect]
     Active Substance: RAMIPRIL
     Dosage: 2.5 MILLIGRAM PER DAY
     Route: 048
  2. RESTAXIL MISCHUNG [Suspect]
     Active Substance: HERBALS\HOMEOPATHICS
     Indication: NEURALGIA
     Dosage: 15 GTT
     Route: 048

REACTIONS (2)
  - Drug-induced liver injury [Recovered/Resolved]
  - Pancreatitis [Recovered/Resolved]
